FAERS Safety Report 9020904 (Version 1)
Quarter: 2013Q1

REPORT INFORMATION
  Report Type: Spontaneous
  Country: US (occurrence: US)
  Receive Date: 20130119
  Receipt Date: 20130119
  Transmission Date: 20140127
  Serious: No
  Sender: FDA-Public Use
  Company Number: US-ALLERGAN-1205320US

PATIENT
  Age: 50 Year
  Sex: Female

DRUGS (3)
  1. BOTOX? [Suspect]
     Indication: TORTICOLLIS
     Dosage: 200 UNITS, SINGLE
     Route: 030
     Dates: start: 20120220, end: 20120220
  2. BOTOX? [Suspect]
     Dosage: 200 UNITS, SINGLE
     Route: 030
     Dates: start: 20120514, end: 20120514
  3. XANAX [Concomitant]
     Indication: INSOMNIA
     Dosage: 0.5 MG, QHS

REACTIONS (2)
  - Dizziness [Recovered/Resolved]
  - Dizziness [Recovering/Resolving]
